FAERS Safety Report 4720675-7 (Version None)
Quarter: 2005Q3

REPORT INFORMATION
  Report Type: 
  Country: None (occurrence: None)
  Receive Date: 20050719
  Receipt Date: 20050711
  Transmission Date: 20060218
  Serious: Yes (Other)
  Sender: FDA-Public Use
  Company Number: 200510526BCC

PATIENT
  Age: 52 Year
  Sex: Male
  Weight: 90.7194 kg

DRUGS (1)
  1. ALEVE [Suspect]
     Indication: BACK PAIN
     Dosage: 220 MG, QOD, ORAL
     Route: 048

REACTIONS (2)
  - NEPHROPATHY TOXIC [None]
  - RENAL PAPILLARY NECROSIS [None]
